FAERS Safety Report 22164473 (Version 1)
Quarter: 2023Q2

REPORT INFORMATION
  Report Type: Spontaneous
  Country: RO (occurrence: RO)
  Receive Date: 20230403
  Receipt Date: 20230403
  Transmission Date: 20230722
  Serious: Yes (Other)
  Sender: FDA-Public Use
  Company Number: None

PATIENT
  Age: 23 Year
  Sex: Female

DRUGS (9)
  1. IMATINIB [Suspect]
     Active Substance: IMATINIB
     Indication: Acute lymphocytic leukaemia
     Dosage: 600 MG, DAILY
  2. DAUNORUBICIN [Suspect]
     Active Substance: DAUNORUBICIN
     Indication: Acute lymphocytic leukaemia
     Dosage: TOTAL DOSE OF 877.5 MG/M2, UNK
  3. VINCRISTINE [Suspect]
     Active Substance: VINCRISTINE
     Indication: Acute lymphocytic leukaemia
     Dosage: TOTAL DOSE 36 MG/M2, UNK
  4. METHOTREXATE [Suspect]
     Active Substance: METHOTREXATE
     Indication: Prophylaxis
     Dosage: TOTAL DOSE OF 4612.5 MG/M2, UNK
  5. CYTARABINE [Suspect]
     Active Substance: CYTARABINE
     Indication: Acute lymphocytic leukaemia
     Dosage: TOTAL DOSE 188 MG/M2, UNK
  6. TENIPOSIDE [Suspect]
     Active Substance: TENIPOSIDE
     Indication: Acute lymphocytic leukaemia
     Dosage: TOTAL DOSE 2625 MG/M2, UNK
  7. DEXAMETHASONE [Suspect]
     Active Substance: DEXAMETHASONE
     Indication: Product used for unknown indication
     Dosage: TOTAL DOSE 18 MG/M2, UNK
  8. DOXORUBICIN HYDROCHLORIDE [Suspect]
     Active Substance: DOXORUBICIN HYDROCHLORIDE
     Indication: Acute lymphocytic leukaemia
     Dosage: 525 MG/M2, UNK
  9. UNSPECIFIED INGREDIENT [Concomitant]
     Active Substance: UNSPECIFIED INGREDIENT
     Indication: Product used for unknown indication
     Dosage: UNK

REACTIONS (6)
  - Ejection fraction decreased [Unknown]
  - Cardiotoxicity [Unknown]
  - Pulse waveform abnormal [Unknown]
  - Ankle brachial index decreased [Unknown]
  - Left ventricular dysfunction [Unknown]
  - Carotid intima-media thickness increased [Unknown]
